FAERS Safety Report 5363052-0 (Version None)
Quarter: 2007Q2

REPORT INFORMATION
  Report Type: 
  Country: None (occurrence: None)
  Receive Date: 20070615
  Receipt Date: 20070606
  Transmission Date: 20071010
  Serious: Yes (Other)
  Sender: FDA-Public Use
  Company Number: 2007JP002633

PATIENT
  Age: 51 Year
  Sex: Female

DRUGS (16)
  1. TACROLIMUS BLINDED(CODE NOT BROKEN) CAPSULE [Suspect]
     Indication: RHEUMATOID ARTHRITIS
     Dosage: ORAL
     Route: 048
     Dates: end: 20070530
  2. RHEUMATREX [Concomitant]
  3. FOLIC ACID [Concomitant]
  4. VOLTAREN [Concomitant]
  5. SOLON (SOFALCONE) CAPSULE [Concomitant]
  6. LIDOCAINE [Concomitant]
  7. KENACORT-A INJECTION [Concomitant]
  8. INTEBAN (INDOMETACIN) CREAM [Concomitant]
  9. RINDERON-VG (GENTAMICIN SULFATE) OINTMENT [Concomitant]
  10. ALLELOCK (OLOPATADINE HYDROCHLORIDE) [Concomitant]
  11. LIDOMEX (PREDNISOLONE VALEROACETATE) OINTMENT [Concomitant]
  12. PREDONINE (PREDNISOLONE OINTMENT) [Concomitant]
  13. METHYCOBAL (MECOBALAMIN) [Concomitant]
  14. SERENAL (OXAZOLAM) [Concomitant]
  15. KETOPROFEN (KETOPROFEN) TAPE [Concomitant]
  16. DASEN (SERRAPEPTASE) [Concomitant]

REACTIONS (1)
  - THROMBOPHLEBITIS [None]
